FAERS Safety Report 11554607 (Version 2)
Quarter: 2015Q4

REPORT INFORMATION
  Report Type: Report from Study
  Country: GR (occurrence: GR)
  Receive Date: 20150925
  Receipt Date: 20151029
  Transmission Date: 20160304
  Serious: Yes (Hospitalization)
  Sender: FDA-Public Use
  Company Number: GR-ABBVIE-15P-066-1468234-00

PATIENT
  Sex: Female

DRUGS (5)
  1. RIVASTIGMINE. [Concomitant]
     Active Substance: RIVASTIGMINE
     Indication: PARKINSON^S DISEASE
     Route: 065
  2. DEPRERAM [Concomitant]
     Indication: PRODUCT USED FOR UNKNOWN INDICATION
     Route: 048
  3. CILROTON [Concomitant]
     Indication: CONSTIPATION
     Route: 048
     Dates: start: 20140918
  4. DUODOPA [Suspect]
     Active Substance: CARBIDOPA\LEVODOPA
     Indication: PARKINSON^S DISEASE
     Dosage: MORNING: 6.4 ML, CONTINUOUS: 3.3 ML/H, EXTRA: 1 ML
     Route: 050
     Dates: start: 20140616
  5. MADOPAR [Concomitant]
     Active Substance: BENSERAZIDE HYDROCHLORIDE\LEVODOPA
     Indication: PARKINSON^S DISEASE
     Route: 048

REACTIONS (8)
  - Syncope [Recovered/Resolved]
  - Weight decreased [Not Recovered/Not Resolved]
  - Hypophagia [Unknown]
  - Decubitus ulcer [Not Recovered/Not Resolved]
  - Depressed mood [Unknown]
  - Asthenia [Not Recovered/Not Resolved]
  - Haematocrit decreased [Not Recovered/Not Resolved]
  - Mood altered [Unknown]

NARRATIVE: CASE EVENT DATE: 201507
